FAERS Safety Report 8592159-X (Version None)
Quarter: 2012Q3

REPORT INFORMATION
  Report Type: 
  Country: None (occurrence: None)
  Receive Date: 20120814
  Receipt Date: 20120802
  Transmission Date: 20120928
  Serious: Yes (Congenital Anomaly, Other)
  Sender: FDA-Public Use
  Company Number: US-ELI_LILLY_AND_COMPANY-US201208001110

PATIENT

DRUGS (2)
  1. PROZAC [Suspect]
     Route: 064
  2. PROZAC [Suspect]
     Route: 064

REACTIONS (4)
  - CONGENITAL CARDIOVASCULAR ANOMALY [None]
  - PATENT DUCTUS ARTERIOSUS [None]
  - COARCTATION OF THE AORTA [None]
  - FOETAL EXPOSURE DURING PREGNANCY [None]
